FAERS Safety Report 7751478-7 (Version None)
Quarter: 2011Q3

REPORT INFORMATION
  Report Type: 
  Country: None (occurrence: None)
  Receive Date: 20110914
  Receipt Date: 20110902
  Transmission Date: 20111222
  Serious: Yes (Death)
  Sender: FDA-Public Use
  Company Number: PHHO2011JP15005

PATIENT
  Sex: Male
  Weight: 63 kg

DRUGS (15)
  1. ALISKIREN [Suspect]
     Indication: CARDIAC FAILURE
     Dosage: CODE NOT BROKEN
     Route: 048
     Dates: start: 20110825, end: 20110831
  2. AMIODARONE HCL [Suspect]
     Indication: VENTRICULAR TACHYCARDIA
     Dosage: 150 MG, UNK
  3. ACARDI [Suspect]
     Indication: CARDIAC FAILURE CHRONIC
     Dosage: 2.5 MG, UNK
     Route: 048
     Dates: start: 20110726
  4. ENALAPRIL MALEATE [Suspect]
     Indication: CARDIAC FAILURE
     Dosage: CODE NOT BROKEN
     Route: 048
     Dates: start: 20110728, end: 20110831
  5. WARFARIN SODIUM [Concomitant]
     Dosage: 0.25 MG, UNK
     Route: 048
  6. NO TREATMENT RECEIVED [Suspect]
     Dosage: UNK MG, NO TREATMENT
  7. DIGOXIN [Concomitant]
     Indication: CARDIAC FAILURE CHRONIC
     Dosage: UNK
     Route: 048
     Dates: start: 20110825
  8. TRICHLORMETHIAZIDE [Concomitant]
     Indication: CARDIAC FAILURE CHRONIC
     Dosage: 2 MG, UNK
     Route: 048
  9. MARZULENE S [Concomitant]
     Indication: GASTRITIS
     Dosage: 1 G, UNK
     Route: 048
  10. ALDACTONE [Concomitant]
     Indication: HYPERTENSION
     Dosage: 25 MG, UNK
     Route: 048
  11. WARFARIN SODIUM [Concomitant]
     Indication: THROMBOSIS PROPHYLAXIS
     Dosage: 1 MG, UNK
     Route: 048
  12. LASIX [Concomitant]
     Indication: CARDIAC FAILURE CHRONIC
     Dosage: 40 MG, UNK
     Route: 048
  13. FAMOTIDINE [Concomitant]
     Indication: GASTRITIS
     Dosage: 10 MG, UNK
     Route: 048
  14. LASIX [Concomitant]
     Dosage: 20 MG, UNK
     Route: 048
  15. ALLOPURINOL [Concomitant]
     Indication: HYPERURICAEMIA
     Dosage: 200 MG, UNK
     Route: 048

REACTIONS (2)
  - CONDITION AGGRAVATED [None]
  - SUDDEN DEATH [None]
